FAERS Safety Report 15893734 (Version 1)
Quarter: 2019Q1

REPORT INFORMATION
  Report Type: Report from Study
  Country: GB (occurrence: GB)
  Receive Date: 20190131
  Receipt Date: 20190131
  Transmission Date: 20190417
  Serious: Yes (Other)
  Sender: FDA-Public Use
  Company Number: GB-ACCORD-104082

PATIENT
  Age: 79 Year
  Sex: Female

DRUGS (2)
  1. 5-FU /00098801/ [Suspect]
     Active Substance: FLUOROURACIL
     Indication: SQUAMOUS CELL CARCINOMA OF THE VULVA
     Dosage: 2 CYCLES RECEIVED,LATER COURSE OF TREATMENT NOT STATED
     Route: 065
  2. MITOMYCIN. [Suspect]
     Active Substance: MITOMYCIN
     Indication: SQUAMOUS CELL CARCINOMA OF THE VULVA
     Dosage: 2 CYCLES RECEIVED, LATER COURSE OF TREATMENT NOT STATED
     Route: 065

REACTIONS (6)
  - Off label use [Unknown]
  - Urinary tract infection [Unknown]
  - Diarrhoea [Unknown]
  - Vulvitis [Unknown]
  - Syncope [Unknown]
  - Hypovolaemia [Unknown]
